FAERS Safety Report 24813589 (Version 1)
Quarter: 2025Q1

REPORT INFORMATION
  Report Type: Report from Study
  Country: US (occurrence: US)
  Receive Date: 20250107
  Receipt Date: 20250107
  Transmission Date: 20250408
  Serious: No
  Sender: SUNOVION
  Company Number: US-SUMITOMO PHARMA SWITZERLAND GMBH-2024SPA006490

PATIENT

DRUGS (1)
  1. ORGOVYX [Suspect]
     Active Substance: RELUGOLIX
     Indication: Prostate cancer
     Dosage: 120 MG, QD
     Route: 048
     Dates: start: 20241127

REACTIONS (6)
  - Vision blurred [Unknown]
  - Abdominal distension [Unknown]
  - Food craving [Unknown]
  - Incorrect dose administered [Unknown]
  - Diarrhoea [Unknown]
  - Fatigue [Unknown]
